FAERS Safety Report 17459651 (Version 2)
Quarter: 2020Q2

REPORT INFORMATION
  Report Type: Report from Study
  Country: BE (occurrence: BE)
  Receive Date: 20200226
  Receipt Date: 20200504
  Transmission Date: 20200713
  Serious: Yes (Hospitalization, Other)
  Sender: FDA-Public Use
  Company Number: NVSC2020BE009584

PATIENT
  Sex: Male
  Weight: 77 kg

DRUGS (5)
  1. OLANZAPINE. [Concomitant]
     Active Substance: OLANZAPINE
     Indication: PSYCHOTIC DISORDER
     Dosage: 2.5 MG
     Route: 065
  2. CLEXANE [Concomitant]
     Active Substance: ENOXAPARIN SODIUM
     Indication: THROMBOSIS
     Dosage: 40 MG
     Route: 065
     Dates: start: 20141030, end: 20141110
  3. GILENYA [Suspect]
     Active Substance: FINGOLIMOD HYDROCHLORIDE
     Indication: RELAPSING-REMITTING MULTIPLE SCLEROSIS
     Dosage: 0.5 MG
     Route: 048
     Dates: start: 201301, end: 20190809
  4. COVERSYL NOVUM [Concomitant]
     Active Substance: PERINDOPRIL
     Indication: HYPERTENSION
     Dosage: 2.5 MG
     Route: 065
  5. URFADYN [Concomitant]
     Active Substance: NIFURTOINOL
     Indication: ANTIBIOTIC PROPHYLAXIS
     Dosage: 100 MG
     Route: 065
     Dates: start: 20141030, end: 20141112

REACTIONS (4)
  - Intestinal adenocarcinoma [Recovering/Resolving]
  - Lymphadenopathy [Unknown]
  - Adenocarcinoma [Unknown]
  - Abdominal pain [Unknown]

NARRATIVE: CASE EVENT DATE: 201907
